FAERS Safety Report 5803683-4 (Version None)
Quarter: 2008Q3

REPORT INFORMATION
  Report Type: 
  Country: None (occurrence: None)
  Receive Date: 20080708
  Receipt Date: 20070821
  Transmission Date: 20090109
  Serious: No
  Sender: FDA-Public Use
  Company Number: US-AMGEN-KDL217555

PATIENT
  Sex: Male
  Weight: 34.5 kg

DRUGS (2)
  1. KINERET [Suspect]
     Indication: JUVENILE ARTHRITIS
     Route: 058
     Dates: start: 20060501
  2. CONCERTA [Concomitant]

REACTIONS (5)
  - ARTHRITIS [None]
  - ERYTHEMA [None]
  - PRURITUS [None]
  - PYREXIA [None]
  - RASH [None]
